FAERS Safety Report 5774831-X (Version None)
Quarter: 2008Q2

REPORT INFORMATION
  Report Type: 
  Country: None (occurrence: None)
  Receive Date: 20080616
  Receipt Date: 20080616
  Transmission Date: 20081010
  Serious: No
  Sender: FDA-Public Use
  Company Number: None

PATIENT
  Sex: Female
  Weight: 99.7913 kg

DRUGS (2)
  1. ZOSYN [Suspect]
     Indication: PSEUDOMONAS INFECTION
     Dates: start: 20080426
  2. ZOSYN [Suspect]
     Indication: URINARY TRACT INFECTION
     Dates: start: 20080426

REACTIONS (3)
  - OEDEMA MOUTH [None]
  - PRURITUS [None]
  - URTICARIA [None]
